FAERS Safety Report 12430951 (Version 2)
Quarter: 2016Q2

REPORT INFORMATION
  Report Type: Spontaneous
  Country: US (occurrence: US)
  Receive Date: 20160602
  Receipt Date: 20160608
  Transmission Date: 20160815
  Serious: No
  Sender: FDA-Public Use
  Company Number: US-009507513-1606USA000463

PATIENT
  Age: 88 Year
  Sex: Female

DRUGS (1)
  1. HEXADROL [Suspect]
     Active Substance: DEXAMETHASONE
     Dosage: 4 MG, Q6H

REACTIONS (1)
  - Substance-induced psychotic disorder [Recovering/Resolving]
